FAERS Safety Report 10950853 (Version 5)
Quarter: 2015Q3

REPORT INFORMATION
  Report Type: Spontaneous
  Country: US (occurrence: US)
  Receive Date: 20150324
  Receipt Date: 20150706
  Transmission Date: 20151125
  Serious: Yes (Hospitalization, Disabling, Other)
  Sender: FDA-Public Use
  Company Number: US-009507513-1106USA03446

PATIENT
  Sex: Male
  Weight: 103.86 kg

DRUGS (5)
  1. FINASTERIDE. [Suspect]
     Active Substance: FINASTERIDE
     Indication: BENIGN PROSTATIC HYPERPLASIA
  2. PROSCAR [Suspect]
     Active Substance: FINASTERIDE
     Indication: BENIGN PROSTATIC HYPERPLASIA
     Dosage: UNK, UNK
     Route: 048
     Dates: end: 2012
  3. PROSCAR [Suspect]
     Active Substance: FINASTERIDE
     Indication: PROSTATOMEGALY
  4. PROSCAR [Suspect]
     Active Substance: FINASTERIDE
     Indication: PROSTATE INFECTION
  5. FINASTERIDE. [Suspect]
     Active Substance: FINASTERIDE
     Indication: PROSTATE INFECTION
     Dosage: 5 MG, UNK
     Route: 048
     Dates: start: 20080509, end: 20140413

REACTIONS (24)
  - Malaise [Unknown]
  - Gastrooesophageal reflux disease [Unknown]
  - Emotional distress [Not Recovered/Not Resolved]
  - Insomnia [Unknown]
  - Fatigue [Unknown]
  - Myalgia [Unknown]
  - Mitral valve prolapse [Unknown]
  - Hepatic steatosis [Unknown]
  - Anxiety [Not Recovered/Not Resolved]
  - Stress at work [Unknown]
  - Otitis media [Unknown]
  - Major depression [Unknown]
  - Sexual dysfunction [Not Recovered/Not Resolved]
  - Headache [Unknown]
  - Hyperlipidaemia [Unknown]
  - Haematospermia [Recovered/Resolved]
  - Suicidal ideation [Unknown]
  - Post-traumatic stress disorder [Unknown]
  - Erectile dysfunction [Unknown]
  - Arthralgia [Unknown]
  - Off label use [Unknown]
  - Papillary thyroid cancer [Unknown]
  - Dizziness [Unknown]
  - Depression [Not Recovered/Not Resolved]

NARRATIVE: CASE EVENT DATE: 1998
